FAERS Safety Report 7203735-0 (Version None)
Quarter: 2010Q4

REPORT INFORMATION
  Report Type: 
  Country: None (occurrence: None)
  Receive Date: 20101230
  Receipt Date: 20101227
  Transmission Date: 20110411
  Serious: Yes (Hospitalization)
  Sender: FDA-Public Use
  Company Number: BG-B.I. PHARMACEUTICALS,INC./RIDGEFIELD-2010-AP-00680AP

PATIENT
  Age: 47 Year
  Sex: Male

DRUGS (6)
  1. PRADAXA [Suspect]
     Indication: ANGIOPLASTY
     Dosage: 150 MG
     Route: 048
     Dates: start: 20100309
  2. PRADAXA [Suspect]
     Indication: VENOUS STENT INSERTION
  3. ASPIRIN [Concomitant]
     Indication: STENT PLACEMENT
     Dosage: 100 MG
     Dates: start: 20100308
  4. DETRALEX [Concomitant]
     Indication: STENT PLACEMENT
     Dates: start: 20100308
  5. ATORVASTATIN CALCIUM [Concomitant]
     Indication: STENT PLACEMENT
     Dosage: 10 MG
     Dates: start: 20100308
  6. CLEXANE [Concomitant]
     Indication: STENT PLACEMENT
     Dates: start: 20100308

REACTIONS (1)
  - THROMBOSIS IN DEVICE [None]
